FAERS Safety Report 21964666 (Version 1)
Quarter: 2023Q1

REPORT INFORMATION
  Report Type: Spontaneous
  Country: US (occurrence: US)
  Receive Date: 20230207
  Receipt Date: 20230207
  Transmission Date: 20230418
  Serious: No
  Sender: FDA-Public Use
  Company Number: US-PURDUE PHARMA-USA-2023-0299227

PATIENT
  Age: 69 Year
  Sex: Female
  Weight: 97.52 kg

DRUGS (1)
  1. BUTRANS [Suspect]
     Active Substance: BUPRENORPHINE
     Indication: Pain management
     Dosage: 5 MCG/HR, WEEKLY
     Route: 062

REACTIONS (3)
  - Tremor [Unknown]
  - Anxiety [Unknown]
  - Drug ineffective [Unknown]
